FAERS Safety Report 12998908 (Version 2)
Quarter: 2017Q3

REPORT INFORMATION
  Report Type: Spontaneous
  Country: US (occurrence: US)
  Receive Date: 20161205
  Receipt Date: 20170808
  Transmission Date: 20171127
  Serious: No
  Sender: FDA-Public Use
  Company Number: US-BAYER-2016-230164

PATIENT
  Sex: Male

DRUGS (1)
  1. KOVALTRY [Suspect]
     Active Substance: ANTIHEMOPHILIC FACTOR, HUMAN RECOMBINANT
     Indication: HAEMORRHAGE PROPHYLAXIS
     Dosage: 60,000 UNITS A MONTH? UNKNOWN EVERY OTHER DAY DOSES
     Route: 042
     Dates: start: 2016

REACTIONS (1)
  - Arthralgia [None]

NARRATIVE: CASE EVENT DATE: 2016
